FAERS Safety Report 5551035-7 (Version None)
Quarter: 2007Q4

REPORT INFORMATION
  Report Type: 
  Country: None (occurrence: None)
  Receive Date: 20071212
  Receipt Date: 20070522
  Transmission Date: 20080405
  Serious: No
  Sender: FDA-Public Use
  Company Number: US-AMGEN-KDL226137

PATIENT
  Sex: Female

DRUGS (1)
  1. ENBREL [Suspect]
     Indication: RHEUMATOID ARTHRITIS
     Route: 058
     Dates: start: 20060701

REACTIONS (10)
  - ABDOMINAL PAIN UPPER [None]
  - CHEILITIS [None]
  - CHEST DISCOMFORT [None]
  - EYE IRRITATION [None]
  - EYE PRURITUS [None]
  - FOOT FRACTURE [None]
  - HEADACHE [None]
  - IMPAIRED HEALING [None]
  - PHARYNGOLARYNGEAL PAIN [None]
  - RASH [None]
